FAERS Safety Report 7335218-1 (Version None)
Quarter: 2011Q1

REPORT INFORMATION
  Report Type: 
  Country: None (occurrence: None)
  Receive Date: 20110302
  Receipt Date: 20110302
  Transmission Date: 20110831
  Serious: Yes (Other)
  Sender: FDA-Public Use
  Company Number: None

PATIENT
  Age: 74 Year
  Sex: Female
  Weight: 92.9874 kg

DRUGS (1)
  1. VICKTOZA [Suspect]
     Indication: DIABETES MELLITUS
     Dosage: 1.2 MG + 1.8 MG ONE TIME A DAY
     Dates: start: 20110206, end: 20110219

REACTIONS (3)
  - INFLUENZA LIKE ILLNESS [None]
  - FATIGUE [None]
  - VERTIGO [None]
